FAERS Safety Report 9723105 (Version 2)
Quarter: 2014Q1

REPORT INFORMATION
  Report Type: Spontaneous
  Country: US (occurrence: US)
  Receive Date: 20131202
  Receipt Date: 20140307
  Transmission Date: 20141002
  Serious: No
  Sender: FDA-Public Use
  Company Number: US-B.I. PHARMACEUTICALS,INC./RIDGEFIELD-2013-BI-38372BP

PATIENT
  Age: 80 Year
  Sex: Male

DRUGS (9)
  1. COMBIVENT [Suspect]
     Indication: CHRONIC OBSTRUCTIVE PULMONARY DISEASE
     Dosage: STRENGTH: 20 MCG / 100 MCG; DAILY DOSE: 80 MCG/ 400 MCG
     Route: 055
     Dates: start: 201310
  2. ASPIRIN [Concomitant]
     Dosage: 325 MG
     Route: 048
  3. VITAMIN [Concomitant]
     Dosage: 400 U
     Route: 048
  4. FENFIBRATE [Concomitant]
     Route: 048
  5. MULTIVITAMIN [Concomitant]
     Route: 048
  6. ATENOLOL [Concomitant]
     Dosage: 25 MG
     Route: 048
  7. FISH OIL [Concomitant]
     Route: 048
  8. LORATADINE [Concomitant]
     Dosage: 10 MG
     Route: 048
  9. SYMBICORT [Concomitant]
     Route: 055

REACTIONS (2)
  - Dyspnoea [Not Recovered/Not Resolved]
  - Product quality issue [Unknown]
